FAERS Safety Report 6614042-9 (Version None)
Quarter: 2010Q1

REPORT INFORMATION
  Report Type: 
  Country: None (occurrence: None)
  Receive Date: 20100225
  Receipt Date: 20090114
  Transmission Date: 20100710
  Serious: Yes (Other)
  Sender: FDA-Public Use
  Company Number: 552301

PATIENT
  Age: 25 Year
  Sex: Female
  Weight: 53.1 kg

DRUGS (6)
  1. ACCUTANE [Suspect]
     Indication: ACNE
     Dosage: 50 MG DAILY ORAL
     Route: 048
     Dates: start: 20010806, end: 20020905
  2. CLARAVIS [Suspect]
     Indication: ACNE
     Dosage: ORAL
     Route: 048
     Dates: start: 20071201, end: 20080201
  3. LOESTRIN 1.5/30 [Concomitant]
  4. ASACOL [Concomitant]
  5. CLARITIN [Concomitant]
  6. NASACORT [Concomitant]

REACTIONS (8)
  - BLOOD CHOLESTEROL INCREASED [None]
  - BLOOD TRIGLYCERIDES INCREASED [None]
  - COLITIS [None]
  - HYPERSENSITIVITY [None]
  - INFLAMMATORY BOWEL DISEASE [None]
  - LIP DRY [None]
  - NASAL DRYNESS [None]
  - PROCTITIS [None]
